FAERS Safety Report 8360996-2 (Version None)
Quarter: 2012Q2

REPORT INFORMATION
  Report Type: 
  Country: None (occurrence: None)
  Receive Date: 20120515
  Receipt Date: 20120504
  Transmission Date: 20120825
  Serious: Yes (Hospitalization)
  Sender: FDA-Public Use
  Company Number: CA-ROCHE-1067003

PATIENT
  Sex: Male

DRUGS (8)
  1. METFORMIN HCL [Concomitant]
     Dates: start: 20060101, end: 20120427
  2. NOVOLIN 70/30 [Concomitant]
     Dates: start: 20110223, end: 20120427
  3. PERINDOPRIL ERBUMINE [Concomitant]
     Dates: start: 20110225, end: 20120427
  4. ATIVAN [Concomitant]
     Dates: start: 20010101
  5. RANIBIZUMAB [Suspect]
     Indication: DIABETIC RETINAL OEDEMA
     Route: 050
     Dates: start: 20110617
  6. ATORVASTATIN CALCIUM [Concomitant]
     Dates: start: 20110225, end: 20120427
  7. NEXIUM [Concomitant]
     Dates: start: 20100101, end: 20120427
  8. GLYBURIDE [Concomitant]
     Dates: start: 20060101, end: 20120427

REACTIONS (1)
  - LUNG DISORDER [None]
